FAERS Safety Report 10134051 (Version 1)
Quarter: 2014Q2

REPORT INFORMATION
  Report Type: Spontaneous
  Country: US (occurrence: US)
  Receive Date: 20140428
  Receipt Date: 20140428
  Transmission Date: 20141212
  Serious: No
  Sender: FDA-Public Use
  Company Number: US-SANOFI-AVENTIS-2013SA067415

PATIENT
  Age: 46 Year
  Sex: Female
  Weight: 90 kg

DRUGS (5)
  1. ALLEGRA [Suspect]
     Indication: HYPERSENSITIVITY
     Route: 048
     Dates: start: 20130627
  2. RELPAX [Concomitant]
     Indication: MIGRAINE
  3. PAROXETINE HYDROCHLORIDE [Concomitant]
     Indication: DEPRESSION
  4. VITAMIN D3 [Concomitant]
     Dosage: DOSE:2000 UNIT(S)
  5. TOPIRAMATE [Concomitant]
     Indication: MIGRAINE

REACTIONS (2)
  - Fatigue [Recovered/Resolved]
  - Extra dose administered [Unknown]
